FAERS Safety Report 16158528 (Version 2)
Quarter: 2019Q4

REPORT INFORMATION
  Report Type: Report from Study
  Country: JP (occurrence: JP)
  Receive Date: 20190404
  Receipt Date: 20191022
  Transmission Date: 20200122
  Serious: No
  Sender: FDA-Public Use
  Company Number: JP-ROCHE-2295745

PATIENT
  Age: 11 Year
  Sex: Female

DRUGS (5)
  1. XOFLUZA [Suspect]
     Active Substance: BALOXAVIR MARBOXIL
     Indication: INFLUENZA
     Route: 048
     Dates: start: 20181229, end: 20181229
  2. FEXOFENADINE HYDROCHLORIDE. [Concomitant]
     Active Substance: FEXOFENADINE HYDROCHLORIDE
     Indication: INFLUENZA
     Route: 065
     Dates: start: 20181229, end: 20190103
  3. DEXTROMETHORPHAN HYDROBROMIDE. [Concomitant]
     Active Substance: DEXTROMETHORPHAN HYDROBROMIDE
     Indication: INFLUENZA
     Route: 065
     Dates: start: 20181229, end: 20190103
  4. AMBROXOL HYDROCHLORIDE [Concomitant]
     Active Substance: AMBROXOL HYDROCHLORIDE
     Indication: INFLUENZA
     Route: 065
     Dates: start: 20181229, end: 20190103
  5. ACETAMINOPHEN. [Concomitant]
     Active Substance: ACETAMINOPHEN
     Indication: INFLUENZA
     Route: 065
     Dates: start: 20181229

REACTIONS (1)
  - Delirium febrile [Recovered/Resolved]

NARRATIVE: CASE EVENT DATE: 20181229
